FAERS Safety Report 15479580 (Version 1)
Quarter: 2018Q4

REPORT INFORMATION
  Report Type: Report from Study
  Country: US (occurrence: US)
  Receive Date: 20181009
  Receipt Date: 20181009
  Transmission Date: 20190205
  Serious: No
  Sender: FDA-Public Use
  Company Number: PHEH2018US041198

PATIENT
  Age: 50 Year
  Sex: Male

DRUGS (1)
  1. COSENTYX [Suspect]
     Active Substance: SECUKINUMAB
     Indication: PSORIATIC ARTHROPATHY
     Dosage: 300 MG, Q2MO
     Route: 058
     Dates: start: 20151214

REACTIONS (11)
  - Arthralgia [Unknown]
  - Tenderness [Unknown]
  - Inappropriate schedule of product administration [Unknown]
  - Dysphonia [Recovering/Resolving]
  - Fatigue [Unknown]
  - Swelling [Unknown]
  - Pain [Unknown]
  - Nasopharyngitis [Recovering/Resolving]
  - Rhinorrhoea [Unknown]
  - Back pain [Unknown]
  - Therapeutic response shortened [Unknown]

NARRATIVE: CASE EVENT DATE: 20181001
